FAERS Safety Report 11333851 (Version 2)
Quarter: 2015Q3

REPORT INFORMATION
  Report Type: Spontaneous
  Country: JP (occurrence: JP)
  Receive Date: 20150803
  Receipt Date: 20150826
  Transmission Date: 20151125
  Serious: Yes (Hospitalization)
  Sender: FDA-Public Use
  Company Number: JP-B.I. PHARMACEUTICALS,INC./RIDGEFIELD-2015-BI-40467NB

PATIENT
  Age: 83 Year
  Sex: Female

DRUGS (3)
  1. BI-SIFROL [Suspect]
     Active Substance: PRAMIPEXOLE
     Dosage: 0.25 MG
     Route: 048
  2. BI-SIFROL [Suspect]
     Active Substance: PRAMIPEXOLE
     Indication: RESTLESS LEGS SYNDROME
     Dosage: 0.125 MG
     Route: 048
     Dates: start: 201406
  3. BI-SIFROL [Suspect]
     Active Substance: PRAMIPEXOLE
     Dosage: 0.125 MG
     Route: 048

REACTIONS (3)
  - Insomnia [Not Recovered/Not Resolved]
  - Blood glucose increased [Not Recovered/Not Resolved]
  - Depression [Not Recovered/Not Resolved]

NARRATIVE: CASE EVENT DATE: 201407
